FAERS Safety Report 7582229-7 (Version None)
Quarter: 2011Q2

REPORT INFORMATION
  Report Type: 
  Country: None (occurrence: None)
  Receive Date: 20110622
  Receipt Date: 20110620
  Transmission Date: 20111010
  Serious: Yes (Hospitalization)
  Sender: FDA-Public Use
  Company Number: SP03753

PATIENT
  Age: 70 Year
  Sex: Male

DRUGS (3)
  1. VISICOL [Suspect]
     Indication: BOWEL PREPARATION
     Dosage: 50 GM, ORAL
     Route: 048
     Dates: start: 20110101, end: 20110101
  2. VALSARTAN [Concomitant]
  3. BENIPIPINE HYDROCHLORIDE [Concomitant]

REACTIONS (3)
  - LOSS OF CONSCIOUSNESS [None]
  - RENAL DISORDER [None]
  - BLOOD CREATININE INCREASED [None]
